FAERS Safety Report 8288643-9 (Version None)
Quarter: 2012Q2

REPORT INFORMATION
  Report Type: 
  Country: None (occurrence: None)
  Receive Date: 20120416
  Receipt Date: 20120322
  Transmission Date: 20120825
  Serious: Yes (Hospitalization, Other)
  Sender: FDA-Public Use
  Company Number: US-BAXTER-2012BH003122

PATIENT
  Sex: Male

DRUGS (2)
  1. EXTRANEAL [Suspect]
     Indication: PERITONEAL DIALYSIS
     Route: 033
  2. DIANEAL [Suspect]
     Indication: PERITONEAL DIALYSIS
     Route: 033
     Dates: start: 20070101, end: 20120207

REACTIONS (7)
  - PULMONARY OEDEMA [None]
  - THROAT TIGHTNESS [None]
  - HEAD AND NECK CANCER [None]
  - CONSTIPATION [None]
  - PNEUMONIA ASPIRATION [None]
  - FATIGUE [None]
  - FLUID OVERLOAD [None]
